FAERS Safety Report 12847590 (Version 1)
Quarter: 2016Q4

REPORT INFORMATION
  Report Type: Spontaneous
  Country: US (occurrence: US)
  Receive Date: 20161013
  Receipt Date: 20161013
  Transmission Date: 20170207
  Serious: No
  Sender: FDA-Public Use
  Company Number: None

PATIENT
  Age: 71 Year
  Sex: Female
  Weight: 90 kg

DRUGS (9)
  1. VITAMIN A [Concomitant]
     Active Substance: VITAMIN A
  2. PLAVIX [Concomitant]
     Active Substance: CLOPIDOGREL BISULFATE
  3. CEPHALEXIN. [Suspect]
     Active Substance: CEPHALEXIN
     Indication: URINARY TRACT INFECTION
  4. CEPHALEXIN. [Suspect]
     Active Substance: CEPHALEXIN
     Indication: PROPHYLAXIS
  5. CRANBERRY PILLS [Concomitant]
  6. LAXATIVE [Concomitant]
     Active Substance: UNSPECIFIED INGREDIENT
  7. FUROSEMIDE. [Concomitant]
     Active Substance: FUROSEMIDE
  8. VITAMIN D3 [Concomitant]
     Active Substance: CHOLECALCIFEROL
  9. TYLENOL [Concomitant]
     Active Substance: ACETAMINOPHEN

REACTIONS (7)
  - Muscle tightness [None]
  - Seizure [None]
  - Abasia [None]
  - Condition aggravated [None]
  - Muscle spasms [None]
  - Central nervous system inflammation [None]
  - Abdominal distension [None]
